FAERS Safety Report 23018051 (Version 2)
Quarter: 2024Q2

REPORT INFORMATION
  Report Type: Spontaneous
  Country: CA (occurrence: CA)
  Receive Date: 20231003
  Receipt Date: 20240422
  Transmission Date: 20240716
  Serious: Yes (Hospitalization)
  Sender: FDA-Public Use
  Company Number: CA-002147023-NVSC2023CA041185

PATIENT
  Sex: Male

DRUGS (9)
  1. CETIRIZINE [Suspect]
     Active Substance: CETIRIZINE HYDROCHLORIDE
     Indication: Product used for unknown indication
     Dosage: 10 MG, QD
     Route: 065
  2. NIFEDIPINE [Suspect]
     Active Substance: NIFEDIPINE
     Indication: Product used for unknown indication
     Dosage: 60 MG, QD
     Route: 048
  3. NAPROXEN [Suspect]
     Active Substance: NAPROXEN
     Indication: Product used for unknown indication
     Dosage: 500 MG, QD
     Route: 065
  4. PANTOPRAZOLE [Suspect]
     Active Substance: PANTOPRAZOLE
     Indication: Product used for unknown indication
     Dosage: 40 MG, QD
     Route: 048
  5. PRAMIPEXOLE [Suspect]
     Active Substance: PRAMIPEXOLE\PRAMIPEXOLE DIHYDROCHLORIDE
     Indication: Product used for unknown indication
     Dosage: 25 MG, QD
     Route: 048
  6. PRAVASTATIN [Suspect]
     Active Substance: PRAVASTATIN
     Indication: Product used for unknown indication
     Dosage: 10 MG, QD
     Route: 048
  7. AMITRIPTYLINE [Concomitant]
     Active Substance: AMITRIPTYLINE
     Indication: Product used for unknown indication
     Dosage: 1 DOSAGE FORM, QD
     Route: 065
  8. ASPIRIN [Concomitant]
     Active Substance: ASPIRIN
     Indication: Product used for unknown indication
     Dosage: UNK, QD
     Route: 065
  9. TYLENOL [Concomitant]
     Active Substance: ACETAMINOPHEN
     Indication: Product used for unknown indication
     Dosage: UNK, OTHER
     Route: 065

REACTIONS (12)
  - Condition aggravated [Unknown]
  - Ocular discomfort [Unknown]
  - Ocular hyperaemia [Unknown]
  - Urticaria chronic [Unknown]
  - Disease recurrence [Unknown]
  - Malaise [Unknown]
  - Fatigue [Unknown]
  - Headache [Unknown]
  - Myalgia [Unknown]
  - Arthralgia [Unknown]
  - Rash [Unknown]
  - Chills [Unknown]
